FAERS Safety Report 4668091-0 (Version None)
Quarter: 2005Q2

REPORT INFORMATION
  Report Type: 
  Country: None (occurrence: None)
  Receive Date: 20050520
  Receipt Date: 20050309
  Transmission Date: 20051028
  Serious: Yes (Hospitalization)
  Sender: FDA-Public Use
  Company Number: US-MERCK-0503USA01687

PATIENT
  Age: 67 Year
  Sex: Female

DRUGS (10)
  1. VIOXX [Suspect]
     Route: 048
     Dates: start: 20020731, end: 20030319
  2. PREDNISONE [Concomitant]
     Route: 065
  3. GUAIFENESIN [Concomitant]
     Route: 065
  4. NICODERM [Concomitant]
     Route: 065
  5. ZANTAC [Concomitant]
     Route: 065
  6. ATENOLOL [Concomitant]
     Route: 065
  7. CLARITIN [Concomitant]
     Route: 065
  8. EFFEXOR XR [Concomitant]
     Route: 065
  9. BACTRIM DS [Concomitant]
     Route: 065
  10. ADALAT CC [Concomitant]
     Route: 065

REACTIONS (19)
  - BRONCHOPNEUMONIA [None]
  - CARDIAC FAILURE CONGESTIVE [None]
  - CAROTID ARTERY OCCLUSION [None]
  - CEREBROVASCULAR ACCIDENT [None]
  - CHRONIC OBSTRUCTIVE PULMONARY DISEASE [None]
  - CORONARY ARTERY DISEASE [None]
  - DEPRESSION [None]
  - DYSLIPIDAEMIA [None]
  - DYSPNOEA [None]
  - HEADACHE [None]
  - HYPOXIA [None]
  - JOINT SWELLING [None]
  - LOBAR PNEUMONIA [None]
  - LUNG INFILTRATION [None]
  - MITRAL VALVE INCOMPETENCE [None]
  - OEDEMA PERIPHERAL [None]
  - POLYTRAUMATISM [None]
  - PULMONARY HILUM MASS [None]
  - PULMONARY HYPERTENSION [None]
